FAERS Safety Report 12159997 (Version 2)
Quarter: 2016Q1

REPORT INFORMATION
  Report Type: Spontaneous
  Country: US (occurrence: US)
  Receive Date: 20160308
  Receipt Date: 20160329
  Transmission Date: 20160526
  Serious: No
  Sender: FDA-Public Use
  Company Number: US-ELI_LILLY_AND_COMPANY-US201602006426

PATIENT
  Sex: Female
  Weight: 86 kg

DRUGS (5)
  1. ADEMPAS [Concomitant]
     Active Substance: RIOCIGUAT
  2. ADCIRCA [Suspect]
     Active Substance: TADALAFIL
     Indication: PRODUCT USED FOR UNKNOWN INDICATION
     Dosage: UNK, UNKNOWN
     Route: 065
  3. BETADINE [Suspect]
     Active Substance: POVIDONE-IODINE
     Indication: PRODUCT USED FOR UNKNOWN INDICATION
     Dosage: UNK, UNKNOWN
     Route: 065
  4. REMODULIN [Suspect]
     Active Substance: TREPROSTINIL
     Indication: PULMONARY HYPERTENSION
     Dosage: 25 DF, CONTINUOUS
     Route: 058
     Dates: start: 20150903
  5. PREPARATION H HYDROCORTISONE [Suspect]
     Active Substance: HYDROCORTISONE
     Indication: PRODUCT USED FOR UNKNOWN INDICATION
     Dosage: UNK, UNKNOWN
     Route: 065

REACTIONS (9)
  - Gingival bleeding [Not Recovered/Not Resolved]
  - Lip swelling [Recovered/Resolved]
  - Vomiting [Unknown]
  - Chills [Not Recovered/Not Resolved]
  - Hypoaesthesia oral [Unknown]
  - Bruxism [Unknown]
  - Drug hypersensitivity [Unknown]
  - Gastric dilatation [Unknown]
  - Nausea [Unknown]
